FAERS Safety Report 5997680-6 (Version None)
Quarter: 2008Q4

REPORT INFORMATION
  Report Type: 
  Country: None (occurrence: None)
  Receive Date: 20081212
  Receipt Date: 20081117
  Transmission Date: 20090506
  Serious: No
  Sender: FDA-Public Use
  Company Number: US-ABBOTT-08P-163-0488383-00

PATIENT
  Sex: Female
  Weight: 73.094 kg

DRUGS (2)
  1. HUMIRA [Suspect]
     Indication: RHEUMATOID ARTHRITIS
     Dates: start: 20080922
  2. HUMIRA [Suspect]
     Indication: DRUG USE FOR UNKNOWN INDICATION

REACTIONS (3)
  - DARK CIRCLES UNDER EYES [None]
  - EYE SWELLING [None]
  - SINUS DISORDER [None]
